FAERS Safety Report 7713628-8 (Version None)
Quarter: 2011Q3

REPORT INFORMATION
  Report Type: 
  Country: None (occurrence: None)
  Receive Date: 20110826
  Receipt Date: 20110823
  Transmission Date: 20111222
  Serious: Yes (Death, Hospitalization)
  Sender: FDA-Public Use
  Company Number: PHHY2011GB75588

PATIENT
  Age: 35 Year
  Sex: Male

DRUGS (3)
  1. PREDNISOLONE [Suspect]
     Dosage: 200 MG, UNK
     Route: 048
  2. MYCOPHENOLATE MOFETIL [Suspect]
  3. TACROLIMUS [Suspect]

REACTIONS (5)
  - ACUTE HEPATIC FAILURE [None]
  - HERPES SIMPLEX HEPATITIS [None]
  - SEPSIS [None]
  - HEPATIC LESION [None]
  - DERMATITIS ACNEIFORM [None]
